FAERS Safety Report 9220167 (Version 1)
Quarter: 2013Q2

REPORT INFORMATION
  Report Type: Spontaneous
  Country: US (occurrence: US)
  Receive Date: 20130409
  Receipt Date: 20130409
  Transmission Date: 20140414
  Serious: Yes (Other)
  Sender: FDA-Public Use
  Company Number: US-TEVA-395360USA

PATIENT
  Sex: Male

DRUGS (3)
  1. TREANDA [Suspect]
     Indication: CHRONIC LYMPHOCYTIC LEUKAEMIA
     Dates: start: 20130225
  2. RITUXIMAB [Concomitant]
     Indication: CHRONIC LYMPHOCYTIC LEUKAEMIA
  3. STEROIDS [Concomitant]
     Indication: RASH

REACTIONS (4)
  - Rash [Unknown]
  - Skin exfoliation [Unknown]
  - Skin hypertrophy [Unknown]
  - Arthralgia [Unknown]
